FAERS Safety Report 5506036-1 (Version None)
Quarter: 2007Q4

REPORT INFORMATION
  Report Type: 
  Country: None (occurrence: None)
  Receive Date: 20071102
  Receipt Date: 20071102
  Transmission Date: 20080405
  Serious: Yes (Hospitalization)
  Sender: FDA-Public Use
  Company Number: None

PATIENT
  Age: 85 Year
  Sex: Male

DRUGS (6)
  1. BACTRIM [Suspect]
     Indication: URINARY TRACT INFECTION
     Dosage: PO
     Route: 048
     Dates: start: 20060911, end: 20060915
  2. FLOMAX [Concomitant]
  3. OMEPRAZOLE [Concomitant]
  4. METOPROLOL TARTRATE [Concomitant]
  5. SEROQUEL [Concomitant]
  6. PROSCAR [Concomitant]

REACTIONS (2)
  - RASH MACULO-PAPULAR [None]
  - RENAL FAILURE ACUTE [None]
